FAERS Safety Report 7551534-2 (Version None)
Quarter: 2011Q2

REPORT INFORMATION
  Report Type: 
  Country: None (occurrence: None)
  Receive Date: 20110616
  Receipt Date: 20110603
  Transmission Date: 20111010
  Serious: Yes (Hospitalization, Other)
  Sender: FDA-Public Use
  Company Number: PHHY2010BR84257

PATIENT
  Sex: Female

DRUGS (8)
  1. PAROXETINE HCL [Concomitant]
     Indication: DEPRESSION
     Dosage: ONE TABLET ONCE A DAY
     Route: 048
  2. LEVOTHYROXINE SODIUM [Concomitant]
     Indication: THYROID DISORDER
     Dosage: 1 TABLET ONCE A DAY
     Route: 048
  3. AMITRIPTYLINE HYDROCHLORIDE [Concomitant]
     Indication: DEPRESSION
     Dosage: ONE TABLET ONCE A DAY
     Route: 048
  4. BROMAZEPAM [Concomitant]
     Dosage: 1 TABLET ONCE A DAY
     Route: 048
  5. OMEPRAZOLE [Concomitant]
     Indication: ABDOMINAL DISCOMFORT
     Dosage: 1 TABLET ONCE A DAY
     Route: 048
  6. EXELON [Suspect]
     Indication: MEMORY IMPAIRMENT
     Dosage: 9MG/5CM2
     Route: 062
     Dates: start: 20100301
  7. EXELON [Suspect]
     Dosage: 18MG/5CM2
     Route: 062
     Dates: end: 20100601
  8. LOSARTAN POTASSIUM AND HYDROCHLOROTHIAZIDE [Concomitant]
     Indication: BLOOD PRESSURE
     Dosage: 1 TABLET ONCE A DAY
     Route: 048

REACTIONS (4)
  - PNEUMONIA [None]
  - INFECTION [None]
  - PULMONARY EMBOLISM [None]
  - NOSOCOMIAL INFECTION [None]
